FAERS Safety Report 23638223 (Version 1)
Quarter: 2024Q1

REPORT INFORMATION
  Report Type: Spontaneous
  Country: PL (occurrence: PL)
  Receive Date: 20240315
  Receipt Date: 20240315
  Transmission Date: 20240410
  Serious: Yes (Life-Threatening, Hospitalization, Other)
  Sender: FDA-Public Use
  Company Number: PL-MLMSERVICE-20240305-4869077-1

PATIENT
  Age: 41 Year
  Sex: Female

DRUGS (3)
  1. MEROPENEM [Suspect]
     Active Substance: MEROPENEM
     Indication: Antibiotic therapy
     Dosage: 2 G EVERY 8 H, 3X/DAY
  2. MORPHINE [Concomitant]
     Active Substance: MORPHINE
     Indication: Porphyria acute
     Dosage: UNK
     Route: 042
  3. HEMIN [Concomitant]
     Active Substance: HEMIN
     Indication: Porphyria acute
     Dosage: UNK
     Route: 042

REACTIONS (1)
  - Porphyria [Recovering/Resolving]
